FAERS Safety Report 5108145-8 (Version None)
Quarter: 2006Q3

REPORT INFORMATION
  Report Type: 
  Country: None (occurrence: None)
  Receive Date: 20060919
  Receipt Date: 20060913
  Transmission Date: 20061208
  Serious: Yes (Other)
  Sender: FDA-Public Use
  Company Number: JP-JPN-A200603687

PATIENT
  Age: 62 Year
  Sex: Male

DRUGS (1)
  1. AUGMENTIN [Suspect]
     Indication: DRUG USE FOR UNKNOWN INDICATION
     Dosage: 3TAB PER DAY
     Route: 048

REACTIONS (2)
  - PLEURAL EFFUSION [None]
  - PLEURISY [None]
